FAERS Safety Report 8728545 (Version 2)
Quarter: 2012Q4

REPORT INFORMATION
  Report Type: 
  Country: DE (occurrence: DE)
  Receive Date: 20120817
  Receipt Date: 20120906
  Transmission Date: 20130627
  Serious: Yes (Hospitalization)
  Sender: FDA-Public Use
  Company Number: DE-TEVA-352553GER

PATIENT
  Sex: Male

DRUGS (1)
  1. LORAZEPAM [Suspect]
     Route: 048

REACTIONS (1)
  - Road traffic accident [Recovered/Resolved]
